FAERS Safety Report 6648739-1 (Version None)
Quarter: 2010Q1

REPORT INFORMATION
  Report Type: 
  Country: None (occurrence: None)
  Receive Date: 20100324
  Receipt Date: 20100312
  Transmission Date: 20100710
  Serious: Yes (Other)
  Sender: FDA-Public Use
  Company Number: DE-PFIZER INC-2010031932

PATIENT
  Age: 74 Year
  Sex: Female
  Weight: 60 kg

DRUGS (5)
  1. SULFASALAZINE [Suspect]
     Dosage: 500 MG, 2 DF, 2X/DAY
     Route: 048
     Dates: start: 20091026, end: 20091210
  2. ACEMETACIN [Concomitant]
     Indication: PSORIATIC ARTHROPATHY
     Dosage: 2 DF, 1X/DAY
  3. OMEPRAZOLE [Concomitant]
     Indication: GASTROOESOPHAGEAL REFLUX DISEASE
     Dosage: 1 DF, 1X/DAY
     Route: 048
  4. METFORMIN [Concomitant]
     Indication: TYPE 2 DIABETES MELLITUS
     Dosage: UNK
     Dates: end: 20091210
  5. INSULIN [Concomitant]
     Indication: TYPE 2 DIABETES MELLITUS
     Dosage: UNK

REACTIONS (4)
  - DECREASED APPETITE [None]
  - HEPATITIS ACUTE [None]
  - NAUSEA [None]
  - WEIGHT DECREASED [None]
